FAERS Safety Report 6470820-0 (Version None)
Quarter: 2009Q4

REPORT INFORMATION
  Report Type: 
  Country: None (occurrence: None)
  Receive Date: 20091203
  Receipt Date: 20091127
  Transmission Date: 20100525
  Serious: Yes (Hospitalization, Other)
  Sender: FDA-Public Use
  Company Number: BR-ABBOTT-08P-020-0450846-00

PATIENT
  Sex: Female
  Weight: 60 kg

DRUGS (13)
  1. HUMIRA [Suspect]
     Indication: RHEUMATOID ARTHRITIS
     Dates: start: 20050326
  2. HUMIRA [Suspect]
  3. HUMIRA [Suspect]
  4. HUMIRA [Suspect]
     Dates: end: 20080428
  5. HUMIRA [Suspect]
  6. HUMIRA [Suspect]
     Dates: start: 20090601, end: 20090923
  7. METHOTREXATE [Concomitant]
     Indication: RHEUMATOID ARTHRITIS
     Dosage: FORM STRENGTH:  0.25 MG
     Route: 048
  8. CHLOROQUINE PHOSPHATE [Concomitant]
     Indication: RHEUMATOID ARTHRITIS
     Route: 048
  9. FERROUS SULFATE W/FOLIC ACID [Concomitant]
     Indication: ANAEMIA
     Route: 048
  10. CALCIUM + VITAMIN D [Concomitant]
     Indication: BONE DISORDER
     Route: 048
  11. LEVOTHYROXINE SODIUM [Concomitant]
     Indication: THYROID DISORDER
     Dosage: FORM STRENGTH:  112 MCG
     Route: 048
  12. ALENDRONATE SODIUM [Concomitant]
     Indication: RHEUMATOID ARTHRITIS
     Route: 048
  13. DIPYRONE [Concomitant]
     Indication: PAIN
     Dosage: FORM STRENGTH: 1000 MG

REACTIONS (11)
  - ADENOIDAL HYPERTROPHY [None]
  - ARTHRALGIA [None]
  - BONE EROSION [None]
  - DRUG INEFFECTIVE [None]
  - INFLUENZA [None]
  - JOINT SWELLING [None]
  - NASAL SEPTUM DEVIATION [None]
  - PAIN IN EXTREMITY [None]
  - PYREXIA [None]
  - RESPIRATORY DISORDER [None]
  - TOOTH LOSS [None]
